FAERS Safety Report 6665141-7 (Version None)
Quarter: 2010Q2

REPORT INFORMATION
  Report Type: 
  Country: None (occurrence: None)
  Receive Date: 20100402
  Receipt Date: 20100329
  Transmission Date: 20101027
  Serious: Yes (Hospitalization)
  Sender: FDA-Public Use
  Company Number: GB-TEVA-229352ISR

PATIENT
  Age: 38 Year
  Sex: Female

DRUGS (2)
  1. SODIUM CHLORIDE [Suspect]
  2. ICODEXTRIN [Suspect]

REACTIONS (1)
  - PLEURAL EFFUSION [None]
